FAERS Safety Report 20575454 (Version 2)
Quarter: 2022Q1

REPORT INFORMATION
  Report Type: Spontaneous
  Country: NZ (occurrence: NZ)
  Receive Date: 20220310
  Receipt Date: 20220330
  Transmission Date: 20220423
  Serious: Yes (Hospitalization)
  Sender: FDA-Public Use
  Company Number: NZ-BEH-2022142839

PATIENT
  Age: 40 Year
  Sex: Female

DRUGS (17)
  1. PRIVIGEN [Suspect]
     Active Substance: HUMAN IMMUNOGLOBULIN G
     Indication: Immunodeficiency common variable
     Dosage: 150 MILLILITER ADMINISTERED OF 30 MG PRESCRIBED DOSE, QMT,  INFUSION RATE AT START: 24.6 ML/HR, INFU
     Route: 042
     Dates: start: 20220203, end: 20220203
  2. QVAR [Concomitant]
     Active Substance: BECLOMETHASONE DIPROPIONATE
     Dosage: 100 MICROGRAM, BID (INHALE ONE PUFF TWICE DAILY)
     Route: 055
     Dates: start: 20220114
  3. VENTOLIN [Concomitant]
     Active Substance: ALBUTEROL SULFATE
     Indication: Cough
     Dosage: 100 MICROGRAM, PRN (INHALE TWO PUFFS Q4H-Q6H)
     Route: 055
     Dates: start: 20220114
  4. VENTOLIN [Concomitant]
     Active Substance: ALBUTEROL SULFATE
     Indication: Wheezing
  5. SYMBICORT [Concomitant]
     Active Substance: BUDESONIDE\FORMOTEROL FUMARATE DIHYDRATE
     Dosage: TWO PUFFS TWICE DAILY, PRN AS PER SMART THERAPY
     Route: 055
     Dates: start: 20220114
  6. ONDANSETRON [Concomitant]
     Active Substance: ONDANSETRON
     Indication: Nausea
     Dosage: 4 MILLIGRAM, TID, PRN
     Route: 060
     Dates: start: 20220114
  7. AMITRIPTYLINE [Concomitant]
     Active Substance: AMITRIPTYLINE
     Dosage: 10 MILLIGRAM, TID (THREE TABLETS ONCE DAILY AT NIGHT)
     Route: 048
     Dates: start: 20220114
  8. PANTOPRAZOLE [Concomitant]
     Active Substance: PANTOPRAZOLE
     Dosage: 20 MILLIGRAM, BID
     Route: 048
     Dates: start: 20220114
  9. VITAMIN D3 [Concomitant]
     Active Substance: CHOLECALCIFEROL
     Dosage: 1.25 MILLIGRAM/50000 IU, QMT
     Dates: start: 20220114
  10. METOCLOPRAMIDE HYDROCHLORIDE [Concomitant]
     Active Substance: METOCLOPRAMIDE HYDROCHLORIDE
     Indication: Nausea
     Dosage: 10 MILLIGRAM, TID, PRN
     Route: 048
     Dates: start: 20220114
  11. PREGABALIN [Concomitant]
     Active Substance: PREGABALIN
     Dosage: 25 MILLIGRAM, BID (TWO CAPSULES ONCE DAILY AT NIGHT)
     Route: 048
     Dates: start: 20220114
  12. ENTOCORT [Concomitant]
     Active Substance: BUDESONIDE
     Dosage: 3 MILLIGRAM, TID (THREE CAPSULES ONCE DAILY)
     Route: 048
     Dates: start: 20220114
  13. DOXINE [DOXYCYCLINE HYCLATE] [Concomitant]
     Dosage: 100 MILLIGRAM, OD
     Route: 048
     Dates: start: 20220114
  14. DOMPERIDONE [Concomitant]
     Active Substance: DOMPERIDONE
     Dosage: 10 MILLIGRAM, TID
     Route: 048
     Dates: start: 20220114
  15. MONTELUKAST [Concomitant]
     Active Substance: MONTELUKAST SODIUM
     Dosage: 10 MILLIGRAM, OD
     Route: 048
     Dates: start: 20220114
  16. FAMOTIDINE [Concomitant]
     Active Substance: FAMOTIDINE
     Dosage: 20 MILLIGRAM, QID (TWO TABLETS TWICE DAILY)
     Route: 048
     Dates: start: 20220114
  17. PACIMOL [Concomitant]
     Indication: Pain
     Dosage: 500 MILLIGRAM, PRN (TWO TABLETS FOUR TIMES DAILY)
     Route: 048
     Dates: start: 20220114

REACTIONS (5)
  - Sinus tachycardia [Not Recovered/Not Resolved]
  - Body temperature increased [Not Recovered/Not Resolved]
  - Heart rate increased [Not Recovered/Not Resolved]
  - Dyspnoea [Not Recovered/Not Resolved]
  - Tachypnoea [Not Recovered/Not Resolved]
